FAERS Safety Report 7427733-7 (Version None)
Quarter: 2011Q2

REPORT INFORMATION
  Report Type: 
  Country: None (occurrence: None)
  Receive Date: 20110421
  Receipt Date: 20110412
  Transmission Date: 20111010
  Serious: Yes (Other)
  Sender: FDA-Public Use
  Company Number: US-ELI_LILLY_AND_COMPANY-US201104004657

PATIENT
  Age: 52 Year
  Sex: Male

DRUGS (2)
  1. STRATTERA [Suspect]
     Dosage: 1 DF, UNK
  2. STRATTERA [Suspect]
     Dosage: 120 MG, BID
     Dates: start: 20080501, end: 20100501

REACTIONS (2)
  - SUPRAVENTRICULAR TACHYCARDIA [None]
  - OVERDOSE [None]
